FAERS Safety Report 18285850 (Version 2)
Quarter: 2020Q3

REPORT INFORMATION
  Report Type: Report from Study
  Country: PK (occurrence: PK)
  Receive Date: 20200919
  Receipt Date: 20200926
  Transmission Date: 20201103
  Serious: Yes (Death, Other)
  Sender: FDA-Public Use
  Company Number: NVSC2020PK254870

PATIENT
  Age: 47 Year
  Sex: Female

DRUGS (2)
  1. GALVUS MET [Suspect]
     Active Substance: METFORMIN HYDROCHLORIDE\VILDAGLIPTIN
     Indication: DIABETES MELLITUS
     Dosage: 1 DF, BID
     Route: 048
     Dates: start: 20180625, end: 202002
  2. CO?DIOVAN [Suspect]
     Active Substance: HYDROCHLOROTHIAZIDE\VALSARTAN
     Indication: HYPERTENSION
     Dosage: 1 DF, QD
     Route: 048
     Dates: start: 20180625, end: 202002

REACTIONS (10)
  - Cold sweat [Fatal]
  - Dyspnoea [Fatal]
  - Dizziness [Fatal]
  - Myocardial infarction [Fatal]
  - Nasopharyngitis [Fatal]
  - Pallor [Fatal]
  - Chest discomfort [Fatal]
  - Angina pectoris [Fatal]
  - Pain in jaw [Fatal]
  - Pain in extremity [Fatal]
